FAERS Safety Report 7823647-9 (Version None)
Quarter: 2011Q4

REPORT INFORMATION
  Report Type: 
  Country: None (occurrence: None)
  Receive Date: 20111019
  Receipt Date: 20111019
  Transmission Date: 20120403
  Serious: Yes (Life-Threatening, Hospitalization, Disabling, Other)
  Sender: FDA-Public Use
  Company Number: None

PATIENT
  Age: 40 Year
  Sex: Male
  Weight: 65.77 kg

DRUGS (3)
  1. CIPROFLOXACIN [Suspect]
     Indication: GASTROINTESTINAL INFECTION
     Dosage: 500 MG
     Route: 048
     Dates: start: 20110930, end: 20111003
  2. PRILOSEC [Concomitant]
     Route: 048
  3. ASPIRIN [Concomitant]
     Route: 048

REACTIONS (37)
  - DIARRHOEA [None]
  - MYALGIA [None]
  - NAUSEA [None]
  - DISTURBANCE IN ATTENTION [None]
  - SOCIAL AVOIDANT BEHAVIOUR [None]
  - WEIGHT DECREASED [None]
  - DIZZINESS [None]
  - DYSPHAGIA [None]
  - INSOMNIA [None]
  - TINNITUS [None]
  - MUSCLE TWITCHING [None]
  - ARTHRALGIA [None]
  - TENDON PAIN [None]
  - WHITE BLOOD CELL COUNT INCREASED [None]
  - DECREASED APPETITE [None]
  - FEELING ABNORMAL [None]
  - HEADACHE [None]
  - CONFUSIONAL STATE [None]
  - FOOD INTOLERANCE [None]
  - HUNGER [None]
  - FATIGUE [None]
  - DRY THROAT [None]
  - PANIC ATTACK [None]
  - HYPERTENSION [None]
  - TACHYPHRENIA [None]
  - POOR QUALITY SLEEP [None]
  - ANXIETY [None]
  - NIGHT SWEATS [None]
  - PAIN [None]
  - MEMORY IMPAIRMENT [None]
  - HALLUCINATION [None]
  - STRESS [None]
  - TACHYCARDIA [None]
  - HYPERHIDROSIS [None]
  - MOOD ALTERED [None]
  - JOINT CREPITATION [None]
  - PAIN IN EXTREMITY [None]
